FAERS Safety Report 23385885 (Version 1)
Quarter: 2024Q1

REPORT INFORMATION
  Report Type: Spontaneous
  Country: FR (occurrence: FR)
  Receive Date: 20240110
  Receipt Date: 20240110
  Transmission Date: 20240410
  Serious: Yes (Hospitalization)
  Sender: FDA-Public Use
  Company Number: FR-AFSSAPS-PA2023002167

PATIENT
  Age: 70 Year
  Sex: Male
  Weight: 70 kg

DRUGS (4)
  1. OXALIPLATIN [Suspect]
     Active Substance: OXALIPLATIN
     Indication: Mantle cell lymphoma stage IV
     Dosage: 100 MILLIGRAM/SQ. METER, CYCLICAL (IN NOVEMBER E. COLI URINARY INFECTION, ALT INCREASE, THROMBOCYTOP
     Route: 042
     Dates: start: 20230705
  2. CYTARABINE [Suspect]
     Active Substance: CYTARABINE
     Indication: Mantle cell lymphoma stage IV
     Dosage: 1000 MILLIGRAM/SQ. METER, CYCLICAL (ARACYTINE 1000 MG/M? (DOSE AJUST?) SOIT 1 900,00 MG DOSE TOTALE
     Route: 042
     Dates: start: 20230705
  3. DEXAMETHASONE [Suspect]
     Active Substance: DEXAMETHASONE
     Indication: Mantle cell lymphoma stage IV
     Dosage: 20 MILLIGRAM, CYCLICAL (DEXAMETHASONE 20 MG (DOSE AJUST?) DOSE TOTALE IV OU PER OS DE J1 ? J4  )
     Route: 042
     Dates: start: 20230705
  4. RITUXIMAB [Suspect]
     Active Substance: RITUXIMAB
     Indication: Mantle cell lymphoma stage IV
     Dosage: 375 MILLIGRAM/SQ. METER, CYCLICAL (RITUXIMAB 375 MG/M? SOIT 700,00 MG DOSE TOTALE IV ? J1  )
     Route: 042
     Dates: start: 20230705

REACTIONS (1)
  - Condition aggravated [Not Recovered/Not Resolved]

NARRATIVE: CASE EVENT DATE: 20230707
